FAERS Safety Report 7724771-1 (Version None)
Quarter: 2011Q3

REPORT INFORMATION
  Report Type: 
  Country: None (occurrence: None)
  Receive Date: 20110901
  Receipt Date: 20110819
  Transmission Date: 20111222
  Serious: No
  Sender: FDA-Public Use
  Company Number: US-B.I. PHARMACEUTICALS,INC./RIDGEFIELD-2011-BP-20424BP

PATIENT
  Age: 65 Year
  Sex: Female

DRUGS (13)
  1. ASACOL [Concomitant]
     Indication: CROHN'S DISEASE
     Dosage: 1200 MG
     Route: 048
  2. METOPROLOL TARTRATE [Concomitant]
     Indication: HYPERTENSION
     Dosage: 100 MG
     Route: 048
  3. LEVOTHYROXINE SODIUM [Concomitant]
     Indication: HYPOTHYROIDISM
     Dosage: 50 MEQ
     Route: 048
  4. GLUCOSAMINE [Concomitant]
     Indication: SUPPLEMENTATION THERAPY
     Route: 048
  5. LUNESTA [Concomitant]
     Indication: INSOMNIA
     Route: 048
  6. KELP [Concomitant]
     Indication: SUPPLEMENTATION THERAPY
     Route: 048
  7. MULTAQ [Concomitant]
     Indication: ATRIAL FIBRILLATION
     Route: 048
  8. VYTORIN [Concomitant]
     Indication: BLOOD CHOLESTEROL INCREASED
     Route: 048
  9. PRADAXA [Suspect]
     Indication: ATRIAL FIBRILLATION
     Dosage: 300 MG
     Route: 048
     Dates: start: 20110620
  10. MULTI-VITAMIN [Concomitant]
     Indication: SUPPLEMENTATION THERAPY
     Route: 048
  11. PREDNISONE [Concomitant]
     Indication: CROHN'S DISEASE
     Dosage: 10 MG
     Route: 048
  12. CO Q10 [Concomitant]
     Indication: SUPPLEMENTATION THERAPY
     Route: 048
  13. CALCIUM CARBONATE [Concomitant]
     Indication: SUPPLEMENTATION THERAPY
     Route: 048

REACTIONS (4)
  - OESOPHAGEAL PAIN [None]
  - ERUCTATION [None]
  - DYSPEPSIA [None]
  - ABDOMINAL PAIN UPPER [None]
